FAERS Safety Report 8299350-0 (Version None)
Quarter: 2012Q2

REPORT INFORMATION
  Report Type: 
  Country: None (occurrence: None)
  Receive Date: 20120419
  Receipt Date: 20120416
  Transmission Date: 20120825
  Serious: Yes (Life-Threatening, Hospitalization)
  Sender: FDA-Public Use
  Company Number: FR-NOVOPROD-341694

PATIENT
  Age: 61 Year
  Sex: Male
  Weight: 117 kg

DRUGS (8)
  1. PLAVIX [Concomitant]
  2. LIRAGLUTIDE FLEXPEN [Suspect]
     Indication: TYPE 2 DIABETES MELLITUS
     Dosage: 1.8 MG, QD
     Route: 058
     Dates: start: 20110524, end: 20111208
  3. ADANCOR [Concomitant]
     Dosage: 10 UNK, UNK
  4. ATORVASTATIN [Concomitant]
     Dosage: 40 UNK, UNK
  5. LIRAGLUTIDE FLEXPEN [Suspect]
     Dosage: 0.6 MG, QD
     Route: 058
     Dates: start: 20120220
  6. VASTAREL [Concomitant]
     Dosage: 35 UNK, UNK
  7. RAMIPRIL [Concomitant]
     Dosage: 10 UNK, UNK
  8. CARVEDILOL [Concomitant]
     Dosage: 25 UNK, UNK

REACTIONS (2)
  - PERIPHERAL ISCHAEMIA [None]
  - THROMBOEMBOLECTOMY [None]
